FAERS Safety Report 10192837 (Version 2)
Quarter: 2014Q2

REPORT INFORMATION
  Report Type: Spontaneous
  Country: FR (occurrence: FR)
  Receive Date: 20140523
  Receipt Date: 20140523
  Transmission Date: 20141212
  Serious: Yes (Other)
  Sender: FDA-Public Use
  Company Number: FR-ABBVIE-14K-056-1231617-00

PATIENT
  Age: 59 Year
  Sex: Male
  Weight: 57 kg

DRUGS (4)
  1. HUMIRA [Suspect]
     Indication: INFLAMMATORY BOWEL DISEASE
     Dates: start: 201206, end: 201310
  2. HUMIRA [Suspect]
     Dates: start: 201312
  3. RACECADOTRIL (TIORFAN) [Concomitant]
     Indication: PRODUCT USED FOR UNKNOWN INDICATION
  4. IMODIUM [Concomitant]
     Indication: PRODUCT USED FOR UNKNOWN INDICATION

REACTIONS (9)
  - Erythema [Unknown]
  - Subileus [Unknown]
  - Wound secretion [Unknown]
  - Vision blurred [Unknown]
  - Eye inflammation [Unknown]
  - Visual acuity reduced [Unknown]
  - Pruritus [Unknown]
  - Erythema [Unknown]
  - Scar [Unknown]
